FAERS Safety Report 10566308 (Version 4)
Quarter: 2015Q1

REPORT INFORMATION
  Report Type: Report from Study
  Country: ES (occurrence: ES)
  Receive Date: 20141105
  Receipt Date: 20150206
  Transmission Date: 20150720
  Serious: Yes (Death, Hospitalization, Other)
  Sender: FDA-Public Use
  Company Number: ES-GLAXOSMITHKLINE-B0979276A

PATIENT
  Sex: Female
  Weight: 120 kg

DRUGS (13)
  1. EZETIMIBA [Concomitant]
     Indication: HYPOTHYROIDISM
     Dosage: 10 MG, QD
     Route: 048
     Dates: start: 20130314, end: 20140211
  2. VALSARTAN. [Concomitant]
     Active Substance: VALSARTAN
     Indication: HYPERTENSION
     Dosage: 80 MG, QD
     Route: 048
     Dates: end: 20140211
  3. PAZOPANIB [Suspect]
     Active Substance: PAZOPANIB
     Indication: METASTATIC RENAL CELL CARCINOMA
     Dosage: 800 MG OD FROM 18 JAN 2013 TO 20 MAR 2013.600 MG OD FROM 05 APR 2013 TO 04 JUL 2013.400 MG OD F[...]
     Dates: start: 20130118, end: 20140211
  4. PREGABALIN. [Concomitant]
     Active Substance: PREGABALIN
     Indication: PAIN
     Dosage: 150 MG, BID
     Route: 048
     Dates: end: 20140211
  5. ACETYLSALICYLIC [Concomitant]
     Indication: ANTIPLATELET THERAPY
     Dosage: 150 MG, QD
     Route: 048
     Dates: end: 20140211
  6. LEVOTHYROXINE [Concomitant]
     Active Substance: LEVOTHYROXINE
     Indication: HYPOTHYROIDISM
     Dosage: 75 MG, QD
     Route: 048
     Dates: start: 20130314, end: 20140211
  7. ATENOLOL. [Concomitant]
     Active Substance: ATENOLOL
     Indication: HYPERTENSION
     Dosage: 50 MG, QD
     Route: 048
     Dates: end: 20140211
  8. OMEPRAZOLE. [Concomitant]
     Active Substance: OMEPRAZOLE
     Dosage: 20 MG, QD
     Route: 048
     Dates: end: 20140211
  9. OXYCODON [Concomitant]
     Active Substance: OXYCODONE
     Indication: PAIN
     Dosage: 80 MG, BID
     Route: 048
     Dates: end: 20140211
  10. CITALOPRAM [Concomitant]
     Active Substance: CITALOPRAM HYDROBROMIDE
     Indication: ANTIDEPRESSANT THERAPY
     Dosage: 20 MG, QD
     Route: 048
     Dates: end: 20140211
  11. ROSUVASTATIN [Concomitant]
     Active Substance: ROSUVASTATIN
     Indication: MYOCARDIAL ISCHAEMIA
     Dosage: 50 MG, QD
     Route: 048
     Dates: end: 20140211
  12. NALOXONE CHLORHYDRATE DE [Concomitant]
     Indication: PAIN
     Dosage: 40 MG, BID
     Route: 048
     Dates: end: 20140211
  13. PARACETAMOL [Concomitant]
     Active Substance: ACETAMINOPHEN
     Indication: PAIN
     Dosage: 1 G, BID
     Route: 048
     Dates: start: 20140108, end: 20140211

REACTIONS (1)
  - Gastric perforation [Fatal]

NARRATIVE: CASE EVENT DATE: 20140211
